FAERS Safety Report 14998470 (Version 1)
Quarter: 2018Q2

REPORT INFORMATION
  Report Type: Spontaneous
  Country: US (occurrence: US)
  Receive Date: 20180612
  Receipt Date: 20180612
  Transmission Date: 20180711
  Serious: No
  Sender: FDA-Public Use
  Company Number: US-ELI_LILLY_AND_COMPANY-US201806001529

PATIENT
  Age: 78 Year
  Sex: Female

DRUGS (2)
  1. FORTEO [Suspect]
     Active Substance: TERIPARATIDE
     Indication: OSTEOPENIA
     Dosage: UNK, UNKNOWN
     Route: 065
  2. FORTEO [Suspect]
     Active Substance: TERIPARATIDE
     Indication: LUMBAR SPINAL STENOSIS
     Dosage: UNK, UNKNOWN
     Route: 065

REACTIONS (5)
  - Dizziness [Unknown]
  - Balance disorder [Unknown]
  - Procedural pain [Unknown]
  - Pain in extremity [Unknown]
  - Off label use [Unknown]
